FAERS Safety Report 7635199 (Version 3)
Quarter: 2013Q2

REPORT INFORMATION
  Report Type: Other
  Country: CZ (occurrence: CZ)
  Receive Date: 20101020
  Receipt Date: 20130627
  Transmission Date: 20140414
  Serious: Yes (Other)
  Sender: FDA-Public Use
  Company Number: CZ-NAPPMUNDI-GBR-2010-0007173

PATIENT
  Age: 57 Year
  Sex: Female

DRUGS (1)
  1. MORPHINE SULFATE [Suspect]
     Indication: PRODUCT USED FOR UNKNOWN INDICATION
     Dosage: 5 MG, DAILY
     Route: 037

REACTIONS (2)
  - Granuloma [Recovered/Resolved]
  - Spinal column stenosis [Recovered/Resolved]
